FAERS Safety Report 23391960 (Version 1)
Quarter: 2024Q1

REPORT INFORMATION
  Report Type: Spontaneous
  Country: US (occurrence: US)
  Receive Date: 20240111
  Receipt Date: 20240111
  Transmission Date: 20240410
  Serious: No
  Sender: FDA-Public Use
  Company Number: US-NAPO PHARMACEUTICALS-2023US004197

PATIENT

DRUGS (2)
  1. MYTESI [Suspect]
     Active Substance: CROFELEMER
     Indication: Gastroenteritis
     Dosage: 125 MG, BID FOR 14 DAYS
     Route: 048
     Dates: start: 202311
  2. MYTESI [Suspect]
     Active Substance: CROFELEMER
     Indication: Colitis

REACTIONS (2)
  - Flatulence [Unknown]
  - Off label use [Unknown]
